FAERS Safety Report 20164815 (Version 1)
Quarter: 2021Q4

REPORT INFORMATION
  Report Type: Spontaneous
  Country: US (occurrence: None)
  Receive Date: 20211208
  Receipt Date: 20211208
  Transmission Date: 20220303
  Serious: Yes (Hospitalization)
  Sender: FDA-Public Use
  Company Number: None

PATIENT
  Age: 52 Year
  Sex: Male
  Weight: 125 kg

DRUGS (1)
  1. METFORMIN [Suspect]
     Active Substance: METFORMIN HYDROCHLORIDE
     Indication: Diabetes mellitus
     Dosage: FREQUENCY : AT BEDTIME;?
     Route: 048
     Dates: start: 20190913, end: 20210906

REACTIONS (3)
  - Pneumonia [None]
  - Chronic obstructive pulmonary disease [None]
  - Metabolic acidosis [None]

NARRATIVE: CASE EVENT DATE: 20210907
